FAERS Safety Report 12408179 (Version 3)
Quarter: 2016Q3

REPORT INFORMATION
  Report Type: Report from Study
  Country: CH (occurrence: CH)
  Receive Date: 20160526
  Receipt Date: 20160822
  Transmission Date: 20161109
  Serious: Yes (Death, Other)
  Sender: FDA-Public Use
  Company Number: CH-PFIZER INC-2016274138

PATIENT

DRUGS (3)
  1. PREGABALIN. [Suspect]
     Active Substance: PREGABALIN
     Dosage: UNK
     Route: 064
  2. ENOXAPARIN [Concomitant]
     Active Substance: ENOXAPARIN
     Dosage: UNK
     Route: 064
  3. ASPIRIN. [Concomitant]
     Active Substance: ASPIRIN
     Dosage: LOW-DOSE
     Route: 064

REACTIONS (8)
  - Maternal exposure during pregnancy [Fatal]
  - Metabolic acidosis [Fatal]
  - Hypotonia [Fatal]
  - Neonatal respiratory distress syndrome [Fatal]
  - Foetal growth restriction [Unknown]
  - Renal failure [Fatal]
  - Hepatocellular injury [Fatal]
  - Shock [Fatal]
